FAERS Safety Report 6766180-8 (Version None)
Quarter: 2010Q2

REPORT INFORMATION
  Report Type: 
  Country: None (occurrence: None)
  Receive Date: 20100611
  Receipt Date: 20100602
  Transmission Date: 20101027
  Serious: Yes (Other)
  Sender: FDA-Public Use
  Company Number: GB-PFIZER INC-2010068965

PATIENT
  Age: 73 Year
  Sex: Male

DRUGS (1)
  1. ARTHROTEC [Suspect]
     Indication: ARTHRITIS
     Dosage: 50 MG, 2X/DAY

REACTIONS (4)
  - INFECTION [None]
  - KNEE ARTHROPLASTY [None]
  - KNEE OPERATION [None]
  - NOSOCOMIAL INFECTION [None]
